FAERS Safety Report 8964564 (Version 1)
Quarter: 2012Q4

REPORT INFORMATION
  Report Type: 
  Country: US (occurrence: US)
  Receive Date: 20121213
  Receipt Date: 20121213
  Transmission Date: 20130627
  Serious: Yes (Hospitalization)
  Sender: FDA-Public Use
  Company Number: US-ASTRAZENECA-2012SE91553

PATIENT
  Age: 46 Year
  Sex: Female
  Weight: 68 kg

DRUGS (11)
  1. NEXIUM [Suspect]
     Indication: GASTROOESOPHAGEAL REFLUX DISEASE
     Route: 048
  2. NEXIUM [Suspect]
     Indication: GASTROOESOPHAGEAL REFLUX DISEASE
     Route: 048
  3. NEXIUM [Suspect]
     Indication: GASTROOESOPHAGEAL REFLUX DISEASE
     Route: 048
     Dates: start: 20121112
  4. PRILOSEC [Suspect]
     Indication: GASTROOESOPHAGEAL REFLUX DISEASE
     Dosage: Unknown dose, daily
     Route: 048
     Dates: end: 2012
  5. LEVOTHYROXINE [Concomitant]
     Indication: THYROID DISORDER
     Route: 048
  6. GABAPENTIN [Concomitant]
     Indication: HEADACHE
     Route: 048
     Dates: start: 2012
  7. MECLIZINE [Concomitant]
     Indication: VERTIGO
     Route: 048
     Dates: start: 2012
  8. BENTYL [Concomitant]
     Indication: IRRITABLE BOWEL SYNDROME
     Route: 048
     Dates: start: 2011
  9. KLONOPIN [Concomitant]
     Indication: NERVE BLOCK
     Route: 048
  10. GAS X [Concomitant]
     Indication: NAUSEA
     Route: 048
     Dates: start: 20121112
  11. TUMS [Concomitant]
     Route: 048
     Dates: start: 20121125

REACTIONS (10)
  - Regurgitation [Unknown]
  - Chest discomfort [Unknown]
  - Oesophageal food impaction [Unknown]
  - Irritable bowel syndrome [Unknown]
  - Sleep disorder due to a general medical condition [Unknown]
  - Chest discomfort [Unknown]
  - Vertigo [Unknown]
  - Constipation [Unknown]
  - Off label use [Unknown]
  - Drug ineffective [Unknown]
